FAERS Safety Report 6693767-3 (Version None)
Quarter: 2010Q2

REPORT INFORMATION
  Report Type: 
  Country: None (occurrence: None)
  Receive Date: 20100421
  Receipt Date: 20100406
  Transmission Date: 20101027
  Serious: Yes (Other)
  Sender: FDA-Public Use
  Company Number: AUR-APL-2010-01111

PATIENT
  Sex: Male

DRUGS (2)
  1. SIMVASTATIN [Suspect]
  2. LOVASTATIN [Suspect]

REACTIONS (3)
  - MUSCLE CONTRACTIONS INVOLUNTARY [None]
  - NERVOUS SYSTEM DISORDER [None]
  - NO THERAPEUTIC RESPONSE [None]
